FAERS Safety Report 8998945 (Version 1)
Quarter: 2013Q1

REPORT INFORMATION
  Report Type: Spontaneous
  Country: US (occurrence: US)
  Receive Date: 20130103
  Receipt Date: 20130103
  Transmission Date: 20140127
  Serious: No
  Sender: FDA-Public Use
  Company Number: US-PFIZER INC-2012332588

PATIENT
  Age: 28 Year
  Sex: Female
  Weight: 72.56 kg

DRUGS (4)
  1. LYRICA [Suspect]
     Indication: FIBROMYALGIA
     Dosage: 75 MG, 2X/DAY
     Dates: start: 2012
  2. LYRICA [Suspect]
     Dosage: 75 MG, 3X/DAY
     Dates: start: 201212
  3. SAVELLA [Concomitant]
     Indication: FIBROMYALGIA
     Dosage: 50 MG, 2X/DAY
     Dates: start: 2012
  4. PRAMIPEXOLE [Concomitant]
     Indication: RESTLESS LEGS SYNDROME
     Dosage: 0.125 MG, 1X/DAY
     Dates: start: 20121214

REACTIONS (6)
  - Somnolence [Unknown]
  - Weight increased [Unknown]
  - Chills [Unknown]
  - Grip strength decreased [Unknown]
  - Dizziness [Unknown]
  - Feeling hot [Unknown]
